FAERS Safety Report 4588745-4 (Version None)
Quarter: 2005Q1

REPORT INFORMATION
  Report Type: 
  Country: None (occurrence: None)
  Receive Date: 20050222
  Receipt Date: 20050106
  Transmission Date: 20050727
  Serious: Yes (Other)
  Sender: FDA-Public Use
  Company Number: US-BRISTOL-MYERS SQUIBB COMPANY-12817227

PATIENT
  Age: 55 Year
  Sex: Female

DRUGS (5)
  1. ERBITUX [Suspect]
     Indication: COLON CANCER METASTATIC
     Dosage: REC'D 3 DOSES - ON 27-DEC, 03-JAN AND 10-JAN; 680 MG THEN 425 MG.
     Route: 042
     Dates: start: 20050103
  2. CPT-11 [Concomitant]
  3. ALOXI [Concomitant]
  4. ATROPINE [Concomitant]
  5. DECADRON [Concomitant]

REACTIONS (2)
  - NEUTROPENIC SEPSIS [None]
  - RASH [None]
